FAERS Safety Report 8932123 (Version 1)
Quarter: 2012Q4

REPORT INFORMATION
  Report Type: 
  Country: ES (occurrence: ES)
  Receive Date: 20121128
  Receipt Date: 20121128
  Transmission Date: 20130627
  Serious: Yes (Hospitalization)
  Sender: FDA-Public Use
  Company Number: ES-PFIZER INC-2012294660

PATIENT
  Age: 68 Year
  Sex: Female

DRUGS (6)
  1. TYGACIL [Suspect]
     Indication: POSTOPERATIVE WOUND INFECTION
     Dosage: 100 mg, 2x/day
     Route: 042
     Dates: start: 20120423, end: 20120429
  2. ACETAMINOPHEN [Suspect]
     Indication: POSTOPERATIVE PAIN
     Dosage: 1 g, 4x/day
     Route: 042
     Dates: start: 20120422, end: 20120429
  3. PANTOPRAZOLE [Suspect]
     Indication: PROPHYLAXIS
     Dosage: 40 mg, 1x/day
     Route: 042
     Dates: start: 20120424, end: 20120426
  4. MYCAMINE [Suspect]
     Indication: ABDOMINAL ABSCESS
     Dosage: 100 mg, 1x/day
     Route: 042
     Dates: start: 20120423, end: 20120429
  5. KEPPRA [Concomitant]
     Indication: CONVULSION
     Dosage: 1 g, 2x/day
     Route: 042
     Dates: start: 20120424, end: 20120426
  6. NOLOTIL [Concomitant]
     Indication: POSTOPERATIVE PAIN
     Dosage: 2 g, 3x/day
     Route: 042
     Dates: start: 20120425, end: 20120517

REACTIONS (1)
  - Hepatitis [Recovering/Resolving]
